FAERS Safety Report 14262056 (Version 1)
Quarter: 2017Q4

REPORT INFORMATION
  Report Type: Report from Study
  Country: US (occurrence: US)
  Receive Date: 20171208
  Receipt Date: 20171208
  Transmission Date: 20180321
  Serious: No
  Sender: FDA-Public Use
  Company Number: PHEH2017US038804

PATIENT
  Sex: Female

DRUGS (1)
  1. VOTRIENT [Suspect]
     Active Substance: PAZOPANIB HYDROCHLORIDE
     Indication: PRODUCT USED FOR UNKNOWN INDICATION
     Route: 065

REACTIONS (20)
  - Rash [Unknown]
  - Stomatitis [Unknown]
  - Dry mouth [Unknown]
  - Ageusia [Unknown]
  - Burning feet syndrome [Unknown]
  - Nervousness [Unknown]
  - Tremor [Unknown]
  - Hiccups [Unknown]
  - Dyspepsia [Unknown]
  - Skin exfoliation [Unknown]
  - Toothache [Unknown]
  - Hypertension [Unknown]
  - Gait inability [Unknown]
  - Gait disturbance [Unknown]
  - Erythema [Unknown]
  - Balance disorder [Unknown]
  - Dysphonia [Unknown]
  - Dysgeusia [Unknown]
  - Alopecia [Unknown]
  - Fatigue [Unknown]
